FAERS Safety Report 21600098 (Version 6)
Quarter: 2024Q1

REPORT INFORMATION
  Report Type: Spontaneous
  Country: US (occurrence: US)
  Receive Date: 20221116
  Receipt Date: 20240326
  Transmission Date: 20240410
  Serious: No
  Sender: FDA-Public Use
  Company Number: US-BRISTOL-MYERS SQUIBB COMPANY-2022-137647

PATIENT
  Age: 63 Year
  Sex: Male

DRUGS (1)
  1. REVLIMID [Suspect]
     Active Substance: LENALIDOMIDE
     Indication: Plasma cell myeloma
     Dosage: OTHER
     Route: 048

REACTIONS (12)
  - Dizziness [Unknown]
  - Product dose omission issue [Unknown]
  - Constipation [Not Recovered/Not Resolved]
  - Bowel movement irregularity [Unknown]
  - Faeces hard [Unknown]
  - Fungal infection [Unknown]
  - Night sweats [Unknown]
  - Back pain [Unknown]
  - Arthralgia [Unknown]
  - Insomnia [Unknown]
  - Weight decreased [Unknown]
  - Eating disorder [Unknown]

NARRATIVE: CASE EVENT DATE: 20221114
